FAERS Safety Report 18430037 (Version 1)
Quarter: 2020Q4

REPORT INFORMATION
  Report Type: Spontaneous
  Country: CN (occurrence: CN)
  Receive Date: 20201027
  Receipt Date: 20201027
  Transmission Date: 20210114
  Serious: Yes (Hospitalization)
  Sender: FDA-Public Use
  Company Number: CN-LUPIN PHARMACEUTICALS INC.-2020-06009

PATIENT
  Age: 41 Year
  Sex: Female
  Weight: 42 kg

DRUGS (5)
  1. METHYLPREDNISOLONE. [Concomitant]
     Active Substance: METHYLPREDNISOLONE
     Indication: CONNECTIVE TISSUE DISORDER
     Dosage: 8 MILLIGRAM, QD
     Route: 065
     Dates: start: 2019, end: 20190822
  2. LOXOPROFEN [Concomitant]
     Active Substance: LOXOPROFEN
     Indication: CONNECTIVE TISSUE DISORDER
     Dosage: 60 MILLIGRAM (AS NEEDED)
     Route: 065
     Dates: start: 2019
  3. HYDROXYCHLOROQUINE SULFATE. [Suspect]
     Active Substance: HYDROXYCHLOROQUINE SULFATE
     Indication: CONNECTIVE TISSUE DISORDER
     Dosage: 200 MILLIGRAM, BID
     Route: 065
     Dates: start: 2019
  4. HYDROXYCHLOROQUINE SULFATE. [Suspect]
     Active Substance: HYDROXYCHLOROQUINE SULFATE
     Dosage: 400 MILLIGRAM, QD (0.5 HOUR AFTER DINNER)
     Route: 065
     Dates: start: 20190822
  5. SOMATOSTATIN [Concomitant]
     Active Substance: SOMATOSTATIN
     Indication: PRODUCT USED FOR UNKNOWN INDICATION
     Dosage: UNK
     Route: 065
     Dates: start: 20190821

REACTIONS (1)
  - Hypoglycaemia [Recovered/Resolved]

NARRATIVE: CASE EVENT DATE: 201908
